FAERS Safety Report 4400790-8 (Version None)
Quarter: 2004Q3

REPORT INFORMATION
  Report Type: 
  Country: None (occurrence: None)
  Receive Date: 20040907
  Receipt Date: 20030609
  Transmission Date: 20050211
  Serious: No
  Sender: FDA-Public Use
  Company Number: US-BRISTOL-MYERS SQUIBB COMPANY-12296919

PATIENT
  Age: 78 Year
  Sex: Female
  Weight: 47 kg

DRUGS (9)
  1. COUMADIN [Suspect]
     Indication: MITRAL VALVE PROLAPSE
     Dosage: DOSAGE: 3 (1MG) ALTERNATING WITH 4 (1MG) DAILY DURATION: ^A FEW YEARS^
     Route: 048
  2. COUMADIN [Suspect]
     Indication: CARDIAC PACEMAKER INSERTION
     Dosage: DOSAGE: 3 (1MG) ALTERNATING WITH 4 (1MG) DAILY DURATION: ^A FEW YEARS^
     Route: 048
  3. COUMADIN [Suspect]
     Indication: BRADYCARDIA
     Dosage: DOSAGE: 3 (1MG) ALTERNATING WITH 4 (1MG) DAILY DURATION: ^A FEW YEARS^
     Route: 048
  4. NORVASC [Concomitant]
  5. DIGOXIN [Concomitant]
  6. ESTRACE [Concomitant]
  7. MAGNESIUM [Concomitant]
  8. POTASSIUM [Concomitant]
  9. MULTI-VITAMIN [Concomitant]

REACTIONS (2)
  - EPISTAXIS [None]
  - SECRETION DISCHARGE [None]
